FAERS Safety Report 5257422-9 (Version None)
Quarter: 2007Q1

REPORT INFORMATION
  Report Type: 
  Country: None (occurrence: None)
  Receive Date: 20070307
  Receipt Date: 20060804
  Transmission Date: 20070707
  Serious: No
  Sender: FDA-Public Use
  Company Number: US-GLAXOSMITHKLINE-A0613784A

PATIENT
  Age: 81 Year
  Sex: Male

DRUGS (2)
  1. REQUIP [Suspect]
     Indication: RESTLESS LEGS SYNDROME
     Dosage: 1MG AT NIGHT
     Route: 048
     Dates: start: 20060630, end: 20060701
  2. COLCHICINE [Concomitant]

REACTIONS (4)
  - HEART RATE INCREASED [None]
  - PALPITATIONS [None]
  - PHOTOPSIA [None]
  - RHINORRHOEA [None]
